FAERS Safety Report 9079055 (Version 1)
Quarter: 2013Q1

REPORT INFORMATION
  Report Type: Spontaneous
  Country: US (occurrence: US)
  Receive Date: 20130130
  Receipt Date: 20130130
  Transmission Date: 20140127
  Serious: Yes (Death)
  Sender: FDA-Public Use
  Company Number: US-FRI-1000042216

PATIENT
  Age: 26 Year
  Sex: Female

DRUGS (3)
  1. LEXAPRO [Suspect]
     Dates: end: 20110416
  2. HYDROCODONE [Suspect]
     Dates: end: 20110416
  3. ALCOHOL [Suspect]
     Dates: end: 20110416

REACTIONS (1)
  - Death [Fatal]
